FAERS Safety Report 19593083 (Version 1)
Quarter: 2021Q3

REPORT INFORMATION
  Report Type: Spontaneous
  Country: US (occurrence: US)
  Receive Date: 20210722
  Receipt Date: 20210722
  Transmission Date: 20211014
  Serious: Yes (Other)
  Sender: FDA-Public Use
  Company Number: None

PATIENT
  Age: 89 Year
  Sex: Female
  Weight: 46.35 kg

DRUGS (8)
  1. AMLODIPINE [Concomitant]
     Active Substance: AMLODIPINE BESYLATE
  2. CITRACAL [Concomitant]
     Active Substance: CALCIUM CITRATE
  3. LISINOPRIL. [Concomitant]
     Active Substance: LISINOPRIL
  4. LATANOPROST. [Concomitant]
     Active Substance: LATANOPROST
  5. SENSIPAR [Suspect]
     Active Substance: CINACALCET HYDROCHLORIDE
     Indication: OSTEOPOROSIS
     Dates: start: 20210504, end: 20210525
  6. XARELTO [Concomitant]
     Active Substance: RIVAROXABAN
  7. OCUVITE [Concomitant]
     Active Substance: VITAMINS
  8. MULTIVITAMIN [Concomitant]
     Active Substance: VITAMINS

REACTIONS (4)
  - Illness [None]
  - Product substitution issue [None]
  - Blood calcium increased [None]
  - Drug ineffective [None]

NARRATIVE: CASE EVENT DATE: 20210525
